FAERS Safety Report 8224761-9 (Version None)
Quarter: 2012Q1

REPORT INFORMATION
  Report Type: 
  Country: None (occurrence: None)
  Receive Date: 20120321
  Receipt Date: 20120316
  Transmission Date: 20120608
  Serious: Yes (Hospitalization, Other)
  Sender: FDA-Public Use
  Company Number: PHEH2012US001695

PATIENT
  Sex: Male
  Weight: 100.25 kg

DRUGS (11)
  1. PREDNISOLONE [Concomitant]
     Indication: CHRONIC OBSTRUCTIVE PULMONARY DISEASE
     Dosage: 100 MG, TID
     Route: 048
  2. OXYCODONE HCL [Concomitant]
     Indication: RENAL CANCER
     Dosage: UNK UKN, Q6H
     Route: 048
  3. MTV [Concomitant]
     Route: 048
  4. FORADIL [Concomitant]
     Indication: CHRONIC OBSTRUCTIVE PULMONARY DISEASE
  5. METOPROLOL TARTRATE [Concomitant]
     Indication: HYPERTENSION
     Dosage: 50 MG, BID
     Route: 048
  6. AFINITOR [Suspect]
     Indication: RENAL CANCER
     Dosage: 10 MG, DAILY
     Route: 048
     Dates: start: 20111110
  7. STOOL SOFTENER [Concomitant]
     Indication: CONSTIPATION
     Dosage: UNK UKN,
     Route: 048
  8. LASIX [Concomitant]
     Indication: CARDIAC FAILURE CONGESTIVE
     Dosage: 40 MG, DAILY
     Route: 048
  9. AMLODIPINE [Concomitant]
     Indication: HYPERTENSION
     Dosage: 10 MG, DAILY
     Route: 048
  10. ASMANEX TWISTHALER [Concomitant]
     Indication: CHRONIC OBSTRUCTIVE PULMONARY DISEASE
     Dosage: 2220 MG, Q12H
  11. SYNTHROID [Concomitant]
     Indication: HYPOTHYROIDISM
     Dosage: 0.1 MG, DAILY
     Route: 048

REACTIONS (2)
  - DYSPNOEA [None]
  - CARDIAC DISORDER [None]
